FAERS Safety Report 10217755 (Version 1)
Quarter: 2014Q2

REPORT INFORMATION
  Report Type: Spontaneous
  Country: US (occurrence: US)
  Receive Date: 20140604
  Receipt Date: 20140604
  Transmission Date: 20141212
  Serious: Yes (Hospitalization)
  Sender: FDA-Public Use
  Company Number: US-GILEAD-2014-0104250

PATIENT
  Age: 50 Year
  Sex: Female

DRUGS (21)
  1. LETAIRIS [Suspect]
     Indication: PRODUCT USED FOR UNKNOWN INDICATION
     Dosage: 10 MG, QD
     Route: 065
     Dates: start: 20121214
  2. RISPERDAL [Concomitant]
  3. NEURONTIN [Concomitant]
  4. VISTARIL                           /00058403/ [Concomitant]
  5. ESTROGEL [Concomitant]
  6. CELEXA                             /00582602/ [Concomitant]
  7. AMARYL [Concomitant]
  8. COZAAR [Concomitant]
  9. NORVASC [Concomitant]
  10. TRAMADOL [Concomitant]
  11. ZOCOR [Concomitant]
  12. ZANAFLEX [Concomitant]
  13. LEVEMIR [Concomitant]
  14. ACETAMINOPHEN W/HYDROCODONE [Concomitant]
  15. LYRICA [Concomitant]
  16. OMEPRAZOLE [Concomitant]
  17. PROTONIX [Concomitant]
  18. FISH OIL [Concomitant]
  19. VITAMIN B COMPLEX [Concomitant]
  20. VITAMIN E                          /00110501/ [Concomitant]
  21. EFFEXOR [Concomitant]

REACTIONS (1)
  - Musculoskeletal chest pain [Not Recovered/Not Resolved]
